FAERS Safety Report 9320408 (Version 2)
Quarter: 2013Q3

REPORT INFORMATION
  Report Type: Spontaneous
  Country: US (occurrence: US)
  Receive Date: 20130530
  Receipt Date: 20130906
  Transmission Date: 20140515
  Serious: Yes (Hospitalization)
  Sender: FDA-Public Use
  Company Number: US-B.I. PHARMACEUTICALS,INC./RIDGEFIELD-2013-BI-14574BP

PATIENT
  Age: 77 Year
  Sex: Male
  Weight: 66.22 kg

DRUGS (16)
  1. PRADAXA [Suspect]
     Indication: ATRIAL FIBRILLATION
     Dosage: 300 MG
     Dates: start: 20110623, end: 20110810
  2. COREG [Concomitant]
     Dosage: 18.75 MG
  3. LASIX [Concomitant]
     Dosage: 20 MG
  4. LANOXIN [Concomitant]
     Dosage: 0.125 MG
  5. FLONASE [Concomitant]
  6. PRINIVIL [Concomitant]
     Dosage: 5 MG
  7. LIPITOR [Concomitant]
     Dosage: 10 MG
  8. FLOMAX [Concomitant]
     Dosage: 0.4 MG
  9. SINGULAIR [Concomitant]
     Dosage: 10 MG
  10. SPIRIVA [Concomitant]
     Dosage: 18 MCG
  11. FLOVENT [Concomitant]
     Dosage: 880 MCG
  12. XOPENEX [Concomitant]
  13. VITAMIN D [Concomitant]
     Dosage: 400 U
  14. COENZYME Q10 [Concomitant]
     Dosage: 160 MG
  15. NITROSTAT [Concomitant]
  16. ASPIRIN [Concomitant]
     Dosage: 81 MG

REACTIONS (1)
  - Diverticulitis intestinal haemorrhagic [Unknown]
